FAERS Safety Report 24976738 (Version 1)
Quarter: 2025Q1

REPORT INFORMATION
  Report Type: Report from Study
  Country: US (occurrence: US)
  Receive Date: 20250217
  Receipt Date: 20250217
  Transmission Date: 20250409
  Serious: Yes (Other)
  Sender: ABBVIE
  Company Number: US-ABBVIE-6068076

PATIENT
  Age: 86 Year
  Sex: Female

DRUGS (2)
  1. RINVOQ [Suspect]
     Active Substance: UPADACITINIB
     Indication: Dermatitis atopic
     Route: 048
     Dates: start: 202403
  2. RINVOQ [Suspect]
     Active Substance: UPADACITINIB
     Indication: Dermatitis atopic
     Route: 048
     Dates: start: 202403

REACTIONS (6)
  - Medical device implantation [Recovered/Resolved with Sequelae]
  - Rash vesicular [Recovering/Resolving]
  - Blister [Recovered/Resolved with Sequelae]
  - Rash pruritic [Recovering/Resolving]
  - Rash papular [Unknown]
  - Dermatitis atopic [Recovered/Resolved with Sequelae]

NARRATIVE: CASE EVENT DATE: 20240101
